FAERS Safety Report 7269210-2 (Version None)
Quarter: 2011Q1

REPORT INFORMATION
  Report Type: 
  Country: None (occurrence: None)
  Receive Date: 20110202
  Receipt Date: 20110124
  Transmission Date: 20110831
  Serious: Yes (Other)
  Sender: FDA-Public Use
  Company Number: BR-AMGEN-BRASP2010000740

PATIENT
  Age: 55 Year
  Sex: Female
  Weight: 90 kg

DRUGS (3)
  1. FOLIC ACID [Concomitant]
     Dosage: UNK UNK, QWK
  2. METHOTREXATE [Concomitant]
     Dosage: 2.5 MG, EVERY SATURDAYS
  3. ENBREL [Suspect]
     Indication: RHEUMATOID ARTHRITIS
     Dosage: 50 MG, QWK
     Route: 058
     Dates: start: 20100930, end: 20101006

REACTIONS (3)
  - SWELLING FACE [None]
  - EYE HAEMORRHAGE [None]
  - VASCULAR INJURY [None]
